FAERS Safety Report 24030764 (Version 1)
Quarter: 2024Q2

REPORT INFORMATION
  Report Type: Spontaneous
  Country: US (occurrence: US)
  Receive Date: 20240628
  Receipt Date: 20240628
  Transmission Date: 20240716
  Serious: No
  Sender: FDA-Public Use
  Company Number: US-PFIZER INC-202400187498

PATIENT
  Age: 77 Year
  Sex: Male
  Weight: 68.027 kg

DRUGS (2)
  1. INLYTA [Suspect]
     Active Substance: AXITINIB
     Indication: Hepatic cancer
     Dosage: 5 MG TWICE A DAY
     Dates: start: 202403
  2. INLYTA [Suspect]
     Active Substance: AXITINIB
     Dosage: 3 MG, TWICE A DAY

REACTIONS (2)
  - Dyspnoea [Recovering/Resolving]
  - Off label use [Unknown]
